FAERS Safety Report 7315484-9 (Version None)
Quarter: 2011Q1

REPORT INFORMATION
  Report Type: 
  Country: None (occurrence: None)
  Receive Date: 20110225
  Receipt Date: 20110216
  Transmission Date: 20110831
  Serious: Yes (Death, Other)
  Sender: FDA-Public Use
  Company Number: FR-CEPHALON-2011000782

PATIENT
  Sex: Female

DRUGS (2)
  1. ACTIQ [Suspect]
     Route: 002
  2. PROPOFAN [Concomitant]

REACTIONS (2)
  - DEATH [None]
  - DRUG PRESCRIBING ERROR [None]
